FAERS Safety Report 7808414-4 (Version None)
Quarter: 2011Q4

REPORT INFORMATION
  Report Type: 
  Country: None (occurrence: None)
  Receive Date: 20111007
  Receipt Date: 20110926
  Transmission Date: 20120403
  Serious: Yes (Disabling)
  Sender: FDA-Public Use
  Company Number: 2011MA014487

PATIENT
  Age: 33 Year
  Sex: Male

DRUGS (5)
  1. LANSOPRAZOLE [Concomitant]
  2. TRAMADOL HYDROCHLORIDE [Suspect]
     Indication: SCIATICA
     Dosage: 100 MG;X1;PO
     Route: 048
     Dates: start: 20110911, end: 20110911
  3. VENTOLIN [Concomitant]
  4. QVAR 40 [Concomitant]
  5. SALMETEROL [Concomitant]

REACTIONS (5)
  - IMPAIRED WORK ABILITY [None]
  - EMOTIONAL DISTRESS [None]
  - FATIGUE [None]
  - INSOMNIA [None]
  - ACTIVITIES OF DAILY LIVING IMPAIRED [None]
